FAERS Safety Report 12073379 (Version 2)
Quarter: 2016Q1

REPORT INFORMATION
  Report Type: Spontaneous
  Country: US (occurrence: US)
  Receive Date: 20160212
  Receipt Date: 20160321
  Transmission Date: 20160526
  Serious: Yes (Other)
  Sender: FDA-Public Use
  Company Number: US-MYLANLABS-2016M1004823

PATIENT

DRUGS (5)
  1. BUDESONIDE CAPSULES [Suspect]
     Active Substance: BUDESONIDE
     Indication: COLITIS MICROSCOPIC
     Dosage: 9 MG, AM
     Route: 048
     Dates: start: 20151231, end: 20160130
  2. MULTI-VITAMINS VITAFIT [Concomitant]
     Dosage: UNK
  3. BUTRANS [Concomitant]
     Active Substance: BUPRENORPHINE
     Dosage: UNK
  4. BUDESONIDE CAPSULES [Suspect]
     Active Substance: BUDESONIDE
     Indication: OFF LABEL USE
  5. FIBER [Concomitant]
     Active Substance: PSYLLIUM HUSK
     Dosage: UNK

REACTIONS (2)
  - Condition aggravated [Recovered/Resolved]
  - Drug ineffective for unapproved indication [Recovered/Resolved]

NARRATIVE: CASE EVENT DATE: 20160101
